FAERS Safety Report 15932139 (Version 1)
Quarter: 2019Q1

REPORT INFORMATION
  Report Type: Spontaneous
  Country: US (occurrence: US)
  Receive Date: 20190207
  Receipt Date: 20190207
  Transmission Date: 20190417
  Serious: No
  Sender: FDA-Public Use
  Company Number: US-PFIZER INC-2019052058

PATIENT
  Age: 41 Year
  Sex: Male

DRUGS (1)
  1. SOMAVERT [Suspect]
     Active Substance: PEGVISOMANT
     Dosage: 30 MG, DAILY
     Dates: start: 200511

REACTIONS (13)
  - Red blood cell count decreased [Unknown]
  - Red cell distribution width decreased [Unknown]
  - Vitamin D decreased [Unknown]
  - Blood chloride decreased [Unknown]
  - Blood creatinine decreased [Unknown]
  - Blood iron decreased [Unknown]
  - Blood thyroid stimulating hormone decreased [Unknown]
  - Urine protein/creatinine ratio increased [Unknown]
  - Haemoglobin decreased [Unknown]
  - Haematocrit decreased [Unknown]
  - Transferrin saturation decreased [Unknown]
  - Blood sodium decreased [Unknown]
  - Blood osmolarity decreased [Unknown]
